FAERS Safety Report 5875259-4 (Version None)
Quarter: 2008Q3

REPORT INFORMATION
  Report Type: 
  Country: None (occurrence: None)
  Receive Date: 20080909
  Receipt Date: 20080902
  Transmission Date: 20090109
  Serious: Yes (Death, Other)
  Sender: FDA-Public Use
  Company Number: US-PURDUE-USA_2008_0033662

PATIENT
  Age: 21 Year
  Sex: Male
  Weight: 94 kg

DRUGS (2)
  1. OXYCONTIN [Suspect]
     Indication: MUSCULOSKELETAL PAIN
  2. ETHANOL [Suspect]

REACTIONS (3)
  - COMPLETED SUICIDE [None]
  - DRUG DEPENDENCE [None]
  - SUBSTANCE ABUSE [None]
